FAERS Safety Report 5242623-6 (Version None)
Quarter: 2007Q1

REPORT INFORMATION
  Report Type: 
  Country: None (occurrence: None)
  Receive Date: 20070214
  Receipt Date: 20070202
  Transmission Date: 20070707
  Serious: Yes (Other)
  Sender: FDA-Public Use
  Company Number: 163-21880-06111132

PATIENT
  Age: 42 Year
  Sex: Male

DRUGS (3)
  1. REVLIMID [Suspect]
     Indication: MULTIPLE MYELOMA
     Dosage: 25 MG, 1 IN 1 D, ORAL
     Route: 048
     Dates: start: 20061031
  2. ASPIRIN [Concomitant]
  3. LOVENOX [Concomitant]

REACTIONS (4)
  - DEEP VEIN THROMBOSIS [None]
  - DIZZINESS [None]
  - PATHOLOGICAL FRACTURE [None]
  - RED BLOOD CELL COUNT DECREASED [None]
